FAERS Safety Report 9236793 (Version 1)
Quarter: 2013Q2

REPORT INFORMATION
  Report Type: Spontaneous
  Country: GB (occurrence: None)
  Receive Date: 20130415
  Receipt Date: 20130415
  Transmission Date: 20140414
  Serious: Yes (Other)
  Sender: FDA-Public Use
  Company Number: KAD201304-000445

PATIENT
  Age: 57 Year
  Sex: Male
  Weight: 70 kg

DRUGS (3)
  1. RIBAVIRIN (RIBAVIRIN) [Suspect]
     Indication: HEPATITIS C
     Dates: start: 20121127
  2. RIBAVIRIN (RIBAVIRIN) [Suspect]
     Indication: HEPATITIS C
     Dates: start: 20121127
  3. INCIVO (TELAPREVIR) [Suspect]

REACTIONS (17)
  - Anaemia [None]
  - Decreased appetite [None]
  - Depression [None]
  - Dry skin [None]
  - Influenza like illness [None]
  - Haemorrhoids [None]
  - Amnesia [None]
  - Mouth ulceration [None]
  - Nausea [None]
  - Pain [None]
  - Rash [None]
  - Dyspnoea [None]
  - Fatigue [None]
  - Treatment noncompliance [None]
  - Vomiting [None]
  - Pruritus [None]
  - Feeling abnormal [None]
